FAERS Safety Report 6828590-X (Version None)
Quarter: 2010Q3

REPORT INFORMATION
  Report Type: 
  Country: None (occurrence: None)
  Receive Date: 20100709
  Receipt Date: 20100706
  Transmission Date: 20110219
  Serious: Yes (Hospitalization)
  Sender: FDA-Public Use
  Company Number: US-GILEAD-2010-0030241

PATIENT
  Sex: Female
  Weight: 89.892 kg

DRUGS (31)
  1. LETAIRIS [Suspect]
     Indication: PULMONARY ARTERIAL HYPERTENSION
     Route: 048
     Dates: start: 20080923
  2. REVATIO [Concomitant]
  3. OXYGEN [Concomitant]
  4. METOLAZONE [Concomitant]
  5. LASIX [Concomitant]
  6. AMLODIPINE BESYLATE [Concomitant]
  7. FOSINOPRIL SODIUM [Concomitant]
  8. ARANESP [Concomitant]
  9. GLIMEPIRIDE [Concomitant]
  10. JANUVIA [Concomitant]
  11. VENTAVIS [Concomitant]
  12. COLCHICINE [Concomitant]
  13. ALLOPURINOL [Concomitant]
  14. PHENOBARBITAL [Concomitant]
  15. ELAVIL [Concomitant]
  16. BONIVA [Concomitant]
  17. PRILOSEC [Concomitant]
  18. ZOCOR [Concomitant]
  19. PRANDIN [Concomitant]
  20. OPTIVE [Concomitant]
  21. RESTASIS [Concomitant]
  22. ULTRAM [Concomitant]
  23. ADVAIR DISKUS 100/50 [Concomitant]
  24. ZITHROMAX [Concomitant]
  25. SPIRIVA [Concomitant]
  26. NEURONTIN [Concomitant]
  27. CLONIDINE HCL [Concomitant]
  28. LEVOXYL [Concomitant]
  29. DEEP SEA [Concomitant]
  30. MAG-OX [Concomitant]
  31. VITAMIN D [Concomitant]

REACTIONS (1)
  - LIVER DISORDER [None]
